FAERS Safety Report 6241403-2 (Version None)
Quarter: 2009Q2

REPORT INFORMATION
  Report Type: 
  Country: None (occurrence: None)
  Receive Date: 20090623
  Receipt Date: 20090611
  Transmission Date: 20091009
  Serious: Yes (Death)
  Sender: FDA-Public Use
  Company Number: FR-SANOFI-SYNTHELABO-A02200901527

PATIENT
  Sex: Female

DRUGS (23)
  1. KAYEXALATE [Suspect]
     Route: 064
     Dates: start: 20080701, end: 20080804
  2. KAYEXALATE [Suspect]
     Route: 064
     Dates: start: 20080805, end: 20081115
  3. VENOFER [Concomitant]
     Dosage: UNK
     Route: 064
  4. ARANESP [Concomitant]
     Dosage: UNK
     Route: 064
  5. NEXIUM [Suspect]
     Route: 064
     Dates: start: 20080701, end: 20080821
  6. NEXIUM [Suspect]
     Route: 064
     Dates: start: 20080822, end: 20081217
  7. UN-ALFA [Suspect]
     Route: 064
     Dates: start: 20080701, end: 20081017
  8. SPECIAFOLDINE [Suspect]
     Route: 064
     Dates: start: 20081008, end: 20081217
  9. LASIX [Suspect]
     Route: 064
     Dates: start: 20080701, end: 20081215
  10. AMLODIPINE [Suspect]
     Route: 064
     Dates: start: 20080701, end: 20080916
  11. AMLODIPINE [Suspect]
     Route: 064
     Dates: start: 20080917, end: 20081215
  12. RUBOZINC [Suspect]
     Route: 064
     Dates: start: 20080829, end: 20080916
  13. ANTIBIOTREX [Suspect]
     Route: 064
     Dates: start: 20080829, end: 20080916
  14. ORELOX [Suspect]
     Route: 064
     Dates: start: 20081107, end: 20081117
  15. ATARAX [Suspect]
     Route: 064
     Dates: start: 20080818, end: 20081217
  16. RHINOFLUIMUCIL [Suspect]
     Route: 064
     Dates: start: 20081107, end: 20081110
  17. PIVALONE [Suspect]
     Route: 064
     Dates: start: 20081031, end: 20081107
  18. MUCOMYST [Suspect]
     Route: 064
     Dates: start: 20081107, end: 20081110
  19. RENAGEL [Suspect]
     Route: 064
     Dates: start: 20080828, end: 20081215
  20. NEORAL [Suspect]
     Route: 064
     Dates: start: 20080701, end: 20081021
  21. NEORAL [Suspect]
     Route: 064
     Dates: start: 20081022, end: 20081105
  22. NEORAL [Suspect]
     Route: 064
     Dates: start: 20081105, end: 20081217
  23. IMUREL [Suspect]
     Route: 064
     Dates: start: 20080701, end: 20080821

REACTIONS (1)
  - INTRA-UTERINE DEATH [None]
